FAERS Safety Report 13412015 (Version 2)
Quarter: 2017Q4

REPORT INFORMATION
  Report Type: Spontaneous
  Country: US (occurrence: US)
  Receive Date: 20170406
  Receipt Date: 20171123
  Transmission Date: 20180320
  Serious: No
  Sender: FDA-Public Use
  Company Number: US-JNJFOC-20170317013

PATIENT
  Sex: Male

DRUGS (19)
  1. RISPERDAL [Suspect]
     Active Substance: RISPERIDONE
     Indication: ANGER
     Route: 048
     Dates: start: 200903, end: 20100405
  2. RISPERIDONE. [Suspect]
     Active Substance: RISPERIDONE
     Indication: ABNORMAL BEHAVIOUR
     Dosage: V1: VARYING DOSES AND VARYING FREQUENCIES
     Route: 048
     Dates: start: 20030124, end: 20100415
  3. RISPERDAL [Suspect]
     Active Substance: RISPERIDONE
     Indication: ATTENTION DEFICIT/HYPERACTIVITY DISORDER
     Dosage: V1: VARYING DOSES AND VARYING FREQUENCIES.
     Route: 048
     Dates: start: 20010716, end: 20080825
  4. RISPERIDONE. [Suspect]
     Active Substance: RISPERIDONE
     Indication: CONDUCT DISORDER
     Dosage: V1: VARYING DOSES AND VARYING FREQUENCIES
     Route: 048
     Dates: start: 20030124, end: 20100415
  5. RISPERDAL [Suspect]
     Active Substance: RISPERIDONE
     Indication: DRUG THERAPY
     Dosage: V1: VARYING DOSES AND VARYING FREQUENCIES.
     Route: 048
     Dates: start: 20010716, end: 20080825
  6. RISPERDAL [Suspect]
     Active Substance: RISPERIDONE
     Indication: ATTENTION DEFICIT/HYPERACTIVITY DISORDER
     Route: 048
     Dates: start: 200903, end: 20100405
  7. RISPERDAL [Suspect]
     Active Substance: RISPERIDONE
     Indication: CONDUCT DISORDER
     Route: 048
     Dates: start: 200903, end: 20100405
  8. RISPERDAL [Suspect]
     Active Substance: RISPERIDONE
     Indication: BIPOLAR DISORDER
     Dosage: V1: VARYING DOSES AND VARYING FREQUENCIES.
     Route: 048
     Dates: start: 20010716, end: 20080825
  9. RISPERDAL [Suspect]
     Active Substance: RISPERIDONE
     Indication: AGGRESSION
     Route: 048
     Dates: start: 200903, end: 20100405
  10. RISPERDAL [Suspect]
     Active Substance: RISPERIDONE
     Indication: ABNORMAL BEHAVIOUR
     Route: 048
     Dates: start: 200903, end: 20100405
  11. RISPERDAL [Suspect]
     Active Substance: RISPERIDONE
     Indication: ABNORMAL BEHAVIOUR
     Dosage: V1: VARYING DOSES AND VARYING FREQUENCIES.
     Route: 048
     Dates: start: 20010716, end: 20080825
  12. RISPERDAL [Suspect]
     Active Substance: RISPERIDONE
     Indication: CONDUCT DISORDER
     Dosage: V1: VARYING DOSES AND VARYING FREQUENCIES.
     Route: 048
     Dates: start: 20010716, end: 20080825
  13. RISPERDAL [Suspect]
     Active Substance: RISPERIDONE
     Indication: BIPOLAR DISORDER
     Route: 048
     Dates: start: 200903, end: 20100405
  14. RISPERIDONE. [Suspect]
     Active Substance: RISPERIDONE
     Indication: BIPOLAR DISORDER
     Dosage: V1: VARYING DOSES AND VARYING FREQUENCIES
     Route: 048
     Dates: start: 20030124, end: 20100415
  15. RISPERDAL [Suspect]
     Active Substance: RISPERIDONE
     Indication: DRUG THERAPY
     Route: 048
     Dates: start: 200903, end: 20100405
  16. RISPERDAL [Suspect]
     Active Substance: RISPERIDONE
     Indication: AGGRESSION
     Dosage: V1: VARYING DOSES AND VARYING FREQUENCIES.
     Route: 048
     Dates: start: 20010716, end: 20080825
  17. RISPERDAL [Suspect]
     Active Substance: RISPERIDONE
     Indication: ANGER
     Dosage: V1: VARYING DOSES AND VARYING FREQUENCIES.
     Route: 048
     Dates: start: 20010716, end: 20080825
  18. RISPERIDONE. [Suspect]
     Active Substance: RISPERIDONE
     Indication: ANGER
     Dosage: V1: VARYING DOSES AND VARYING FREQUENCIES
     Route: 048
     Dates: start: 20030124, end: 20100415
  19. RISPERIDONE. [Suspect]
     Active Substance: RISPERIDONE
     Indication: ATTENTION DEFICIT/HYPERACTIVITY DISORDER
     Dosage: V1: VARYING DOSES AND VARYING FREQUENCIES
     Route: 048
     Dates: start: 20030124, end: 20100415

REACTIONS (2)
  - Gynaecomastia [Unknown]
  - Emotional disorder [Unknown]
